FAERS Safety Report 14900353 (Version 1)
Quarter: 2018Q2

REPORT INFORMATION
  Report Type: Spontaneous
  Country: CN (occurrence: CN)
  Receive Date: 20180516
  Receipt Date: 20180516
  Transmission Date: 20180711
  Serious: Yes (Other)
  Sender: FDA-Public Use
  Company Number: CN-ABBVIE-18S-035-2353246-00

PATIENT
  Age: 36 Year
  Sex: Male

DRUGS (4)
  1. BRISKING [Suspect]
     Active Substance: ARIPIPRAZOLE
     Route: 048
     Dates: start: 20180201, end: 20180306
  2. VALPROATE SODIUM. [Suspect]
     Active Substance: VALPROATE SODIUM
     Indication: SCHIZOPHRENIA
     Route: 048
     Dates: start: 20180201, end: 20180306
  3. BRISKING [Suspect]
     Active Substance: ARIPIPRAZOLE
     Indication: SCHIZOPHRENIA
     Route: 048
     Dates: start: 20180126, end: 20180131
  4. VALPROATE SODIUM. [Suspect]
     Active Substance: VALPROATE SODIUM
     Indication: AFFECT LABILITY

REACTIONS (2)
  - Tremor [Recovering/Resolving]
  - Hypertonia [Recovering/Resolving]

NARRATIVE: CASE EVENT DATE: 20180208
